FAERS Safety Report 7218765-2 (Version None)
Quarter: 2011Q1

REPORT INFORMATION
  Report Type: 
  Country: None (occurrence: None)
  Receive Date: 20110110
  Receipt Date: 20100517
  Transmission Date: 20110831
  Serious: No
  Sender: FDA-Public Use
  Company Number: US-ABBOTT-10P-163-0640796-00

PATIENT
  Sex: Female
  Weight: 81.72 kg

DRUGS (1)
  1. VICODIN [Suspect]
     Indication: RIB FRACTURE
     Route: 048
     Dates: start: 20040201, end: 20040201

REACTIONS (1)
  - DRUG INEFFECTIVE [None]
